FAERS Safety Report 8622833-8 (Version None)
Quarter: 2012Q3

REPORT INFORMATION
  Report Type: 
  Country: None (occurrence: None)
  Receive Date: 20120827
  Receipt Date: 20120821
  Transmission Date: 20120928
  Serious: Yes (Other)
  Sender: FDA-Public Use
  Company Number: PHEH2012US016478

PATIENT
  Age: 58 Year
  Sex: Male

DRUGS (2)
  1. EXELON [Suspect]
     Dosage: 4.6 MG, UNK
     Route: 062
  2. EXELON [Suspect]
     Dosage: 2 DF (4.6MG), UNK
     Route: 062

REACTIONS (3)
  - DRUG ADMINISTRATION ERROR [None]
  - STAPHYLOCOCCAL INFECTION [None]
  - BLOOD GLUCOSE ABNORMAL [None]
